FAERS Safety Report 10095393 (Version 3)
Quarter: 2015Q3

REPORT INFORMATION
  Report Type: Spontaneous
  Country: US (occurrence: US)
  Receive Date: 20140422
  Receipt Date: 20150814
  Transmission Date: 20151125
  Serious: No
  Sender: FDA-Public Use
  Company Number: US-GILEAD-2013-0076017

PATIENT
  Age: 56 Year
  Sex: Female

DRUGS (5)
  1. LETAIRIS [Suspect]
     Active Substance: AMBRISENTAN
     Indication: PULMONARY HYPERTENSION
     Dosage: 10 MG, QD
     Dates: start: 20120926
  2. ADCIRCA [Concomitant]
     Active Substance: TADALAFIL
  3. LETAIRIS [Suspect]
     Active Substance: AMBRISENTAN
     Indication: CHRONIC OBSTRUCTIVE PULMONARY DISEASE
  4. WARFARIN [Concomitant]
     Active Substance: WARFARIN
  5. LETAIRIS [Suspect]
     Active Substance: AMBRISENTAN
     Indication: SLEEP APNOEA SYNDROME

REACTIONS (1)
  - Headache [Unknown]
